FAERS Safety Report 24609287 (Version 2)
Quarter: 2024Q4

REPORT INFORMATION
  Report Type: Report from Study
  Country: CA (occurrence: CA)
  Receive Date: 20241112
  Receipt Date: 20241121
  Transmission Date: 20250115
  Serious: No
  Sender: TAIHO ONCOLOGY INC
  Company Number: CA-TAIHOP-2024-006654

PATIENT
  Age: 54 Year
  Sex: Male

DRUGS (3)
  1. LONSURF [Suspect]
     Active Substance: TIPIRACIL HYDROCHLORIDE\TRIFLURIDINE
     Indication: Colorectal cancer metastatic
     Dosage: CYCLE 1?FORM STRENGTH UNKNOWN
     Route: 048
     Dates: start: 20240702
  2. LONSURF [Suspect]
     Active Substance: TIPIRACIL HYDROCHLORIDE\TRIFLURIDINE
     Dosage: FORM STRENGTH UNKNOWN, CYCLE UNKNOWN
     Route: 048
  3. ZIRABEV [Concomitant]
     Active Substance: BEVACIZUMAB-BVZR
     Indication: Product used for unknown indication
     Dates: start: 20240702

REACTIONS (4)
  - Disease progression [Unknown]
  - Nausea [Unknown]
  - Vomiting [Unknown]
  - Cytopenia [Unknown]
